FAERS Safety Report 5969162-9 (Version None)
Quarter: 2008Q4

REPORT INFORMATION
  Report Type: 
  Country: None (occurrence: None)
  Receive Date: 20081126
  Receipt Date: 20081119
  Transmission Date: 20090506
  Serious: Yes (Hospitalization)
  Sender: FDA-Public Use
  Company Number: JP-WATSON-2008-06861

PATIENT
  Age: 63 Year
  Sex: Female

DRUGS (2)
  1. DISOPYRAMIDE (WATSON LABORATORIES) [Suspect]
     Indication: ATRIAL FIBRILLATION
     Dosage: 300 MG, DAILY
     Dates: start: 20061005, end: 20070127
  2. DISOPYRAMIDE (WATSON LABORATORIES) [Suspect]
     Indication: CARDIAC FAILURE

REACTIONS (5)
  - ELECTROCARDIOGRAM QT PROLONGED [None]
  - MYASTHENIA GRAVIS [None]
  - RESPIRATORY FAILURE [None]
  - STRESS CARDIOMYOPATHY [None]
  - TORSADE DE POINTES [None]
